FAERS Safety Report 4953879-9 (Version None)
Quarter: 2006Q1

REPORT INFORMATION
  Report Type: 
  Country: None (occurrence: None)
  Receive Date: 20060321
  Receipt Date: 20060309
  Transmission Date: 20060701
  Serious: Yes (Hospitalization, Other)
  Sender: FDA-Public Use
  Company Number: C-06-0014

PATIENT
  Age: 13 Year
  Sex: Female
  Weight: 56.6996 kg

DRUGS (2)
  1. PREDNISOLONE SODIUM PHOSPHATE [Suspect]
     Indication: INFECTIOUS MONONUCLEOSIS
     Dosage: 10ML ORALLY TWICE/DAY
     Dates: start: 20060301, end: 20060308
  2. CEFZIL [Concomitant]

REACTIONS (5)
  - DYSPHAGIA [None]
  - FATIGUE [None]
  - ORAL INTAKE REDUCED [None]
  - RESPIRATORY DISORDER [None]
  - THERAPY NON-RESPONDER [None]
